FAERS Safety Report 14216078 (Version 1)
Quarter: 2017Q4

REPORT INFORMATION
  Report Type: Report from Study
  Country: US (occurrence: US)
  Receive Date: 20171122
  Receipt Date: 20171122
  Transmission Date: 20180321
  Serious: Yes (Other)
  Sender: FDA-Public Use
  Company Number: US-GILEAD-2017-0305692

PATIENT
  Age: 46 Year
  Sex: Male

DRUGS (3)
  1. SILDENAFIL CITRATE. [Concomitant]
     Active Substance: SILDENAFIL CITRATE
     Dosage: UNK
  2. UPTRAVI [Concomitant]
     Active Substance: SELEXIPAG
     Dosage: UNK
  3. AMBRISENTAN [Suspect]
     Active Substance: AMBRISENTAN
     Indication: PRODUCT USED FOR UNKNOWN INDICATION
     Dosage: 10 MG, QD
     Route: 065
     Dates: start: 20171113

REACTIONS (5)
  - Headache [Not Recovered/Not Resolved]
  - Loss of consciousness [Unknown]
  - Dyspnoea [Unknown]
  - Nausea [Not Recovered/Not Resolved]
  - Intentional product use issue [Recovered/Resolved]
